FAERS Safety Report 10065059 (Version 1)
Quarter: 2014Q1

REPORT INFORMATION
  Report Type: Spontaneous
  Country: US (occurrence: None)
  Receive Date: 20140328
  Receipt Date: 20140328
  Transmission Date: 20141002
  Serious: No
  Sender: FDA-Public Use
  Company Number: 1000052585

PATIENT
  Age: 82 Year
  Sex: Female

DRUGS (13)
  1. LINZESS (LINACLOTIDE) (145 MICROGRAM, CAPSULES) [Suspect]
     Indication: CONSTIPATION
     Dosage: 145 MCG, 1 IN 1 D
     Route: 048
     Dates: start: 20131210
  2. VITAMIN D [Concomitant]
  3. PRESERVISION [Concomitant]
  4. BABY ASPIRIN [Concomitant]
  5. COREG [Concomitant]
  6. HYDROCHLOROTHIAZIDE [Concomitant]
  7. HYDROCODONE-ACETAMINOPHEN [Concomitant]
  8. ATIVAN [Concomitant]
  9. COZAAR [Concomitant]
  10. ACCOLATE [Concomitant]
  11. TRAMADOL [Concomitant]
  12. VOLTAREN [Concomitant]
  13. AMBIEN [Concomitant]

REACTIONS (2)
  - Diarrhoea [None]
  - Faecal incontinence [None]
